FAERS Safety Report 4756709-3 (Version None)
Quarter: 2005Q3

REPORT INFORMATION
  Report Type: 
  Country: None (occurrence: None)
  Receive Date: 20050830
  Receipt Date: 20040909
  Transmission Date: 20060218
  Serious: Yes (Hospitalization)
  Sender: FDA-Public Use
  Company Number: US-BRISTOL-MYERS SQUIBB COMPANY-12697041

PATIENT
  Age: 77 Year
  Sex: Male
  Weight: 60 kg

DRUGS (10)
  1. CARBOPLATIN [Suspect]
     Indication: NON-SMALL CELL LUNG CANCER
     Dosage: AUC 6
     Dates: start: 20040802, end: 20040830
  2. PEMETREXED DISODIUM [Suspect]
     Indication: NON-SMALL CELL LUNG CANCER
     Dates: start: 20040802, end: 20040830
  3. RADIATION THERAPY [Suspect]
     Indication: NON-SMALL CELL LUNG CANCER
     Dosage: DOSE: 200 CGY
     Dates: start: 20040802, end: 20040917
  4. DOCETAXEL [Suspect]
     Indication: NON-SMALL CELL LUNG CANCER
     Dosage: 128 MG
     Route: 042
     Dates: start: 20041015, end: 20041015
  5. FOLIC ACID [Concomitant]
     Indication: VITAMIN SUPPLEMENTATION
     Route: 048
     Dates: start: 20000101
  6. MEVACOR [Concomitant]
     Indication: HYPERCHOLESTEROLAEMIA
     Route: 048
     Dates: start: 20040401
  7. ASPIRIN [Concomitant]
     Indication: PROPHYLAXIS
     Route: 048
     Dates: start: 20040401
  8. B12 [Concomitant]
     Dates: start: 20040723
  9. SOTALOL HCL [Concomitant]
     Indication: ATRIAL FLUTTER
     Route: 048
     Dates: start: 20040824, end: 20041001
  10. COUMADIN [Concomitant]
     Indication: ATRIAL FLUTTER
     Route: 048
     Dates: start: 20040824

REACTIONS (3)
  - ATRIAL FLUTTER [None]
  - RADIATION PNEUMONITIS [None]
  - SYNCOPE [None]
